FAERS Safety Report 9995772 (Version 1)
Quarter: 2014Q1

REPORT INFORMATION
  Report Type: Spontaneous
  Country: US (occurrence: None)
  Receive Date: 20140225
  Receipt Date: 20140225
  Transmission Date: 20141002
  Serious: Yes (Hospitalization)
  Sender: FDA-Public Use
  Company Number: 2013-US-000129

PATIENT
  Age: 36 Year
  Sex: Female

DRUGS (1)
  1. PRIALT [Suspect]
     Indication: NEURALGIA
     Route: 037
     Dates: end: 20130901

REACTIONS (3)
  - Pyrexia [None]
  - Burning sensation [None]
  - Drug ineffective [None]
